FAERS Safety Report 24870033 (Version 2)
Quarter: 2025Q1

REPORT INFORMATION
  Report Type: Spontaneous
  Country: US (occurrence: US)
  Receive Date: 20250121
  Receipt Date: 20250220
  Transmission Date: 20250408
  Serious: Yes (Other)
  Sender: PFIZER
  Company Number: US-PFIZER INC-202400198865

PATIENT
  Age: 61 Year
  Sex: Female

DRUGS (3)
  1. CIBINQO [Suspect]
     Active Substance: ABROCITINIB
     Indication: Dermatitis atopic
     Dosage: 100 MG, 1X/DAY
     Dates: start: 2024
  2. CIBINQO [Suspect]
     Active Substance: ABROCITINIB
     Indication: Dermatitis
  3. CIBINQO [Suspect]
     Active Substance: ABROCITINIB
     Indication: Psoriasis

REACTIONS (3)
  - Pneumonia [Unknown]
  - Influenza [Unknown]
  - Off label use [Unknown]
